FAERS Safety Report 10013938 (Version 1)
Quarter: 2014Q1

REPORT INFORMATION
  Report Type: Spontaneous
  Country: US (occurrence: US)
  Receive Date: 20140316
  Receipt Date: 20140316
  Transmission Date: 20141002
  Serious: Yes (Hospitalization)
  Sender: FDA-Public Use
  Company Number: US-LUNDBECK-DKLU1096531

PATIENT
  Age: 26 Year
  Sex: Male

DRUGS (5)
  1. ONFI [Suspect]
     Indication: PRODUCT USED FOR UNKNOWN INDICATION
     Dates: start: 201208
  2. ONFI [Suspect]
     Dates: start: 201308
  3. ONFI [Suspect]
     Dates: start: 201311
  4. ONFI [Suspect]
     Dates: start: 201312
  5. ONFI [Suspect]

REACTIONS (1)
  - Convulsion [Not Recovered/Not Resolved]
